FAERS Safety Report 10060230 (Version 3)
Quarter: 2014Q2

REPORT INFORMATION
  Report Type: Spontaneous
  Country: US (occurrence: US)
  Receive Date: 20140404
  Receipt Date: 20140609
  Transmission Date: 20141212
  Serious: Yes (Hospitalization, Other)
  Sender: FDA-Public Use
  Company Number: US-LUNDBECK-DKLU1098803

PATIENT
  Age: 1 Year
  Sex: Female

DRUGS (5)
  1. SABRIL     (TABLET) [Suspect]
     Indication: INFANTILE SPASMS
     Route: 048
     Dates: start: 20140226, end: 20140327
  2. SABRIL     (TABLET) [Suspect]
     Route: 048
     Dates: start: 20140328
  3. SABRIL     (TABLET) [Suspect]
     Route: 048
     Dates: start: 20140328, end: 20140425
  4. BACLOFEN [Concomitant]
     Indication: PRODUCT USED FOR UNKNOWN INDICATION
  5. MIRALAX [Concomitant]
     Indication: PRODUCT USED FOR UNKNOWN INDICATION

REACTIONS (2)
  - Convulsion [Unknown]
  - Vomiting [Unknown]
